FAERS Safety Report 26037448 (Version 1)
Quarter: 2025Q4

REPORT INFORMATION
  Report Type: Spontaneous
  Country: US (occurrence: US)
  Receive Date: 20251112
  Receipt Date: 20251112
  Transmission Date: 20260118
  Serious: Yes (Other)
  Sender: NOVARTIS
  Company Number: US-002147023-NVSC2025US172542

PATIENT
  Sex: Female

DRUGS (2)
  1. CYCLOSPORINE [Interacting]
     Active Substance: CYCLOSPORINE
     Indication: Cystitis interstitial
     Dosage: UNK
     Route: 048
  2. PENTOSAN POLYSULFATE SODIUM [Interacting]
     Active Substance: PENTOSAN POLYSULFATE SODIUM
     Indication: Cystitis interstitial
     Dosage: 5.8 G (VIA BLADDER INSTILLATION ONLY)
     Route: 043

REACTIONS (3)
  - Pigmentary maculopathy [Unknown]
  - Drug interaction [Unknown]
  - Off label use [Unknown]
